FAERS Safety Report 9815080 (Version 2)
Quarter: 2014Q1

REPORT INFORMATION
  Report Type: Spontaneous
  Country: DE (occurrence: DE)
  Receive Date: 20140114
  Receipt Date: 20140220
  Transmission Date: 20141002
  Serious: Yes (Other)
  Sender: FDA-Public Use
  Company Number: DE-BEH-2014040042

PATIENT
  Sex: Female

DRUGS (5)
  1. HIZENTRA [Suspect]
     Dosage: SINCE 29 MONTHS
     Route: 058
  2. HIZENTRA [Suspect]
     Indication: IMMUNODEFICIENCY COMMON VARIABLE
     Dosage: USED IN THE PAST SIX MONTHS
  3. HIZENTRA [Suspect]
     Dosage: USED IN THE PAST SIX MONTHS
  4. HIZENTRA [Suspect]
     Dosage: USED IN THE PAST SIX MONTHS
  5. HIZENTRA [Suspect]
     Dosage: USED IN THE PAST SIX MONTHS

REACTIONS (10)
  - Injection site necrosis [Not Recovered/Not Resolved]
  - Injection site inflammation [Not Recovered/Not Resolved]
  - Injection site pruritus [Not Recovered/Not Resolved]
  - Injection site pain [Not Recovered/Not Resolved]
  - Injection site pain [Unknown]
  - Injection site pain [Unknown]
  - Injection site pruritus [Unknown]
  - Injection site pain [Recovered/Resolved]
  - Injection site pruritus [Recovered/Resolved]
  - Injection site erythema [Recovered/Resolved]
